FAERS Safety Report 4956771-9 (Version None)
Quarter: 2006Q1

REPORT INFORMATION
  Report Type: 
  Country: None (occurrence: None)
  Receive Date: 20060329
  Receipt Date: 20060117
  Transmission Date: 20060701
  Serious: Yes (Hospitalization)
  Sender: FDA-Public Use
  Company Number: US-ROCHE-432607

PATIENT
  Age: 70 Year
  Sex: Female
  Weight: 63.5 kg

DRUGS (3)
  1. XELODA [Suspect]
     Indication: COLORECTAL CANCER
     Dosage: LOW DOSE STATED AS 5 DAYS ON AND 2 DAYS OFF.
     Route: 048
  2. ASPIRIN [Concomitant]
     Route: 048
  3. PLAVIX [Concomitant]
     Route: 048

REACTIONS (1)
  - ARTERIAL INSUFFICIENCY [None]
